FAERS Safety Report 10184994 (Version 1)
Quarter: 2014Q2

REPORT INFORMATION
  Report Type: Spontaneous
  Country: US (occurrence: None)
  Receive Date: 20140520
  Receipt Date: 20140520
  Transmission Date: 20141212
  Serious: Yes (Disabling)
  Sender: FDA-Public Use
  Company Number: None

PATIENT
  Age: 52 Year
  Sex: Male
  Weight: 68.95 kg

DRUGS (1)
  1. VASCEPA [Suspect]
     Indication: BLOOD TRIGLYCERIDES INCREASED
     Dosage: 1 PILL
     Route: 048

REACTIONS (4)
  - Tremor [None]
  - Hepatic pain [None]
  - Joint stiffness [None]
  - Gastrooesophageal reflux disease [None]
